FAERS Safety Report 4789809-2 (Version None)
Quarter: 2005Q4

REPORT INFORMATION
  Report Type: 
  Country: None (occurrence: None)
  Receive Date: 20051006
  Receipt Date: 20051003
  Transmission Date: 20060501
  Serious: Yes (Death)
  Sender: FDA-Public Use
  Company Number: US-GLAXOSMITHKLINE-B0395912A

PATIENT
  Age: 46 Year

DRUGS (3)
  1. DILTIAZEM [Suspect]
     Route: 065
  2. INSULIN [Suspect]
     Route: 051
  3. BUPROPION [Suspect]
     Route: 065

REACTIONS (2)
  - CARDIO-RESPIRATORY ARREST [None]
  - COMPLETED SUICIDE [None]
